FAERS Safety Report 9679143 (Version 2)
Quarter: 2013Q4

REPORT INFORMATION
  Report Type: Spontaneous
  Country: JP (occurrence: JP)
  Receive Date: 20131108
  Receipt Date: 20131108
  Transmission Date: 20140711
  Serious: Yes (Hospitalization)
  Sender: FDA-Public Use
  Company Number: US-ASTRAZENECA-2013SE76491

PATIENT
  Age: 32132 Day
  Sex: Female
  Weight: 24.6 kg

DRUGS (5)
  1. ECARD COMBINATION TABLETS HD [Suspect]
     Indication: HYPERTENSION
     Dosage: 1 DF EVERY DAY
     Route: 048
     Dates: start: 20130815, end: 20130903
  2. LEANAC [Concomitant]
     Indication: GASTRITIS
     Route: 048
     Dates: start: 20110317
  3. ALESION [Concomitant]
     Indication: PRURITUS
     Route: 048
  4. METHYCOBAL [Concomitant]
     Indication: NEUROPATHY PERIPHERAL
     Route: 048
  5. SELBEX [Concomitant]
     Indication: GASTRITIS
     Route: 048

REACTIONS (4)
  - Weight decreased [Recovering/Resolving]
  - Hypochloraemia [Recovering/Resolving]
  - Hypocalcaemia [Recovering/Resolving]
  - Hyponatraemia [Recovering/Resolving]
